APPROVED DRUG PRODUCT: PENTOXIFYLLINE
Active Ingredient: PENTOXIFYLLINE
Strength: 400MG
Dosage Form/Route: TABLET, EXTENDED RELEASE;ORAL
Application: A075191 | Product #001 | TE Code: AB
Applicant: APOTEX INC
Approved: Jun 9, 1999 | RLD: No | RS: Yes | Type: RX